FAERS Safety Report 19141837 (Version 1)
Quarter: 2021Q2

REPORT INFORMATION
  Report Type: Spontaneous
  Country: PT (occurrence: PT)
  Receive Date: 20210415
  Receipt Date: 20210415
  Transmission Date: 20210717
  Serious: Yes (Hospitalization)
  Sender: FDA-Public Use
  Company Number: PT-B.I. PHARMACEUTICALS,INC./RIDGEFIELD-2021-BI-096461

PATIENT
  Age: 48 Year
  Sex: Female

DRUGS (1)
  1. CATAPRESSAN [Suspect]
     Active Substance: CLONIDINE
     Indication: HYPERTENSION
     Dates: end: 2021

REACTIONS (1)
  - Hypertension [Not Recovered/Not Resolved]
